FAERS Safety Report 9467699 (Version 1)
Quarter: 2013Q3

REPORT INFORMATION
  Report Type: Report from Study
  Country: CA (occurrence: CA)
  Receive Date: 20130821
  Receipt Date: 20130821
  Transmission Date: 20140515
  Serious: Yes (Other)
  Sender: FDA-Public Use
  Company Number: CA-JNJFOC-20130805204

PATIENT
  Age: 78 Year
  Sex: Male
  Weight: 90 kg

DRUGS (3)
  1. REMICADE [Suspect]
     Indication: RHEUMATOID ARTHRITIS
     Route: 042
     Dates: start: 20100623
  2. METHOTREXATE [Concomitant]
     Dosage: 15 MG ^QS^ - A SUFFICIENT QUANTITY
     Route: 048
  3. ROSUVASTATIN [Concomitant]
     Route: 048

REACTIONS (3)
  - Latent tuberculosis [Unknown]
  - Lower respiratory tract infection [Unknown]
  - Pleural effusion [Unknown]
